FAERS Safety Report 6251416-2 (Version None)
Quarter: 2009Q2

REPORT INFORMATION
  Report Type: 
  Country: None (occurrence: None)
  Receive Date: 20090630
  Receipt Date: 20090623
  Transmission Date: 20091009
  Serious: Yes (Death, Life-Threatening, Hospitalization)
  Sender: FDA-Public Use
  Company Number: DE-JNJFOC-20070900686

PATIENT
  Age: 71 Year
  Sex: Female
  Weight: 53 kg

DRUGS (9)
  1. DOXORUBICIN HCL [Suspect]
     Indication: BREAST CANCER METASTATIC
     Route: 042
  2. HYDROCHLOROTHIAZIDE [Concomitant]
     Indication: HYPERTENSION
     Route: 048
  3. RAMIPRIL [Concomitant]
     Indication: HYPERTENSION
     Route: 048
  4. METOPROLOL TARTRATE [Concomitant]
     Indication: HYPERTENSION
     Route: 048
  5. FENTANYL-100 [Concomitant]
     Indication: PAIN
     Route: 061
  6. OMEPRAZOLE [Concomitant]
     Indication: GASTRIC DISORDER
     Route: 048
  7. BELOC ZOK MITE [Concomitant]
     Indication: CORONARY ARTERY DISEASE
     Route: 048
  8. ASA (MESALAZIN) [Concomitant]
     Indication: GASTRIC DISORDER
     Route: 048
  9. CLEMASTINE FUMARATE [Concomitant]
     Indication: HYPERSENSITIVITY

REACTIONS (8)
  - ATRIAL FIBRILLATION [None]
  - CACHEXIA [None]
  - DIARRHOEA [None]
  - GASTRIC DISORDER [None]
  - GENERAL PHYSICAL HEALTH DETERIORATION [None]
  - HYPERSENSITIVITY [None]
  - RESPIRATORY DISORDER [None]
  - STRIDOR [None]
